FAERS Safety Report 8321805-0 (Version None)
Quarter: 2012Q2

REPORT INFORMATION
  Report Type: 
  Country: None (occurrence: None)
  Receive Date: 20120430
  Receipt Date: 20120426
  Transmission Date: 20120825
  Serious: Yes (Death)
  Sender: FDA-Public Use
  Company Number: TN-SANOFI-AVENTIS-2012SA029724

PATIENT
  Age: 67 Year
  Sex: Male

DRUGS (5)
  1. PLAVIX [Suspect]
     Route: 048
     Dates: start: 20110401, end: 20110801
  2. ASPEGIC 1000 [Concomitant]
     Route: 048
     Dates: end: 20110801
  3. LOPRIL /FRA/ [Concomitant]
     Route: 048
     Dates: end: 20110801
  4. FAMODINE [Concomitant]
     Route: 048
     Dates: end: 20110801
  5. LESCOL [Concomitant]
     Route: 048
     Dates: end: 20110801

REACTIONS (1)
  - ACUTE PULMONARY OEDEMA [None]
